FAERS Safety Report 9136718 (Version 1)
Quarter: 2013Q1

REPORT INFORMATION
  Report Type: Spontaneous
  Country: GB (occurrence: GB)
  Receive Date: 20130304
  Receipt Date: 20130304
  Transmission Date: 20140127
  Serious: Yes (Disabling)
  Sender: FDA-Public Use
  Company Number: GB-TEVA-388164ISR

PATIENT
  Age: 80 Year
  Sex: Female

DRUGS (6)
  1. NITROFURANTOIN [Suspect]
     Indication: PROPHYLAXIS URINARY TRACT INFECTION
     Route: 048
     Dates: start: 2010
  2. FERROUS SULPHATE [Concomitant]
  3. DABIGATRAN [Concomitant]
  4. PROPAFENONE [Concomitant]
  5. CANDESARTAN [Concomitant]
  6. PREMARIN [Concomitant]

REACTIONS (6)
  - Neuropathy peripheral [Not Recovered/Not Resolved]
  - Neurological symptom [Unknown]
  - Headache [Unknown]
  - Eye pain [Unknown]
  - Blindness transient [Unknown]
  - Pain in extremity [Unknown]
